FAERS Safety Report 12837325 (Version 2)
Quarter: 2016Q4

REPORT INFORMATION
  Report Type: Report from Study
  Country: AR (occurrence: AR)
  Receive Date: 20161011
  Receipt Date: 20161207
  Transmission Date: 20170207
  Serious: Yes (Hospitalization, Other)
  Sender: FDA-Public Use
  Company Number: AR-B.I. PHARMACEUTICALS,INC./RIDGEFIELD-2016-BI-34807BI

PATIENT
  Age: 75 Year
  Sex: Male
  Weight: 98.85 kg

DRUGS (7)
  1. BLINDED BI 1356 [Suspect]
     Active Substance: LINAGLIPTIN
     Route: 065
     Dates: start: 20160627, end: 20160823
  2. ASPIRIN. [Concomitant]
     Active Substance: ASPIRIN
     Indication: CARDIOVASCULAR EVENT PROPHYLAXIS
     Route: 048
     Dates: start: 2006
  3. ATORVASTATIN [Concomitant]
     Active Substance: ATORVASTATIN
     Indication: DYSLIPIDAEMIA
     Route: 048
     Dates: start: 201011
  4. GLIMEPIRIDE. [Concomitant]
     Active Substance: GLIMEPIRIDE
     Indication: TYPE 2 DIABETES MELLITUS
     Dosage: DOSE PER APPLICATION AND DAILY DOSE: 4
     Route: 048
     Dates: start: 201011
  5. BLINDED BI 1356 [Suspect]
     Active Substance: LINAGLIPTIN
     Indication: TYPE 2 DIABETES MELLITUS
     Route: 065
     Dates: start: 20110715, end: 20111126
  6. CARVEDILOL. [Concomitant]
     Active Substance: CARVEDILOL
     Indication: ISCHAEMIC CARDIOMYOPATHY
     Route: 048
     Dates: start: 20141128
  7. LOSARTAN. [Concomitant]
     Active Substance: LOSARTAN
     Indication: HYPERTENSION
     Route: 048
     Dates: start: 2011

REACTIONS (4)
  - Urethral stenosis [Recovered/Resolved with Sequelae]
  - Urinary bladder polyp [Recovered/Resolved with Sequelae]
  - Transitional cell carcinoma [Not Recovered/Not Resolved]
  - Phimosis [Recovered/Resolved]

NARRATIVE: CASE EVENT DATE: 20160316
